FAERS Safety Report 23516638 (Version 3)
Quarter: 2024Q2

REPORT INFORMATION
  Report Type: Spontaneous
  Country: US (occurrence: US)
  Receive Date: 20240213
  Receipt Date: 20240614
  Transmission Date: 20240717
  Serious: No
  Sender: FDA-Public Use
  Company Number: US-UCBSA-2024000267

PATIENT
  Age: 32 Year
  Sex: Male
  Weight: 108.84 kg

DRUGS (1)
  1. BIMZELX [Suspect]
     Active Substance: BIMEKIZUMAB-BKZX
     Indication: Psoriasis
     Dosage: 320 MILLIGRAM, EV 4 WEEKS
     Route: 058
     Dates: start: 202312

REACTIONS (3)
  - Respiratory tract infection [Unknown]
  - Diarrhoea [Unknown]
  - Adverse event [Unknown]

NARRATIVE: CASE EVENT DATE: 20231201
